FAERS Safety Report 5745268-4 (Version None)
Quarter: 2008Q2

REPORT INFORMATION
  Report Type: 
  Country: None (occurrence: None)
  Receive Date: 20080521
  Receipt Date: 20080519
  Transmission Date: 20081010
  Serious: Yes (Hospitalization)
  Sender: FDA-Public Use
  Company Number: FR-JNJFOC-20080406057

PATIENT
  Sex: Male

DRUGS (10)
  1. HALDOL [Suspect]
     Indication: PSYCHOTIC DISORDER
     Route: 048
  2. LOXAPINE HCL [Suspect]
     Indication: PSYCHOTIC DISORDER
     Route: 048
  3. LEXOMIL [Suspect]
     Indication: DRUG USE FOR UNKNOWN INDICATION
     Route: 048
  4. ATARAX [Suspect]
     Indication: DRUG USE FOR UNKNOWN INDICATION
     Route: 048
  5. AERIUS [Concomitant]
     Indication: HYPERSENSITIVITY
     Route: 048
  6. PREVISCAN [Concomitant]
     Indication: ATRIAL FIBRILLATION
     Route: 048
  7. AMIODARONE [Concomitant]
     Indication: ATRIAL FIBRILLATION
     Route: 048
  8. ISOBAR [Concomitant]
     Indication: HYPERTENSION
     Route: 048
  9. LEPTICUR [Concomitant]
     Indication: EXTRAPYRAMIDAL DISORDER
     Route: 048
  10. PRAXINOR [Concomitant]
     Route: 048

REACTIONS (3)
  - DISTURBANCE IN ATTENTION [None]
  - FALL [None]
  - FEMORAL NECK FRACTURE [None]
